FAERS Safety Report 5574967-2 (Version None)
Quarter: 2007Q4

REPORT INFORMATION
  Report Type: 
  Country: None (occurrence: None)
  Receive Date: 20071227
  Receipt Date: 20071221
  Transmission Date: 20080405
  Serious: Yes (Other)
  Sender: FDA-Public Use
  Company Number: B0499983A

PATIENT
  Age: 74 Year
  Sex: Female

DRUGS (4)
  1. ZANTAC [Suspect]
     Indication: DRUG USE FOR UNKNOWN INDICATION
     Dosage: 150MG PER DAY
     Route: 042
     Dates: start: 20071208, end: 20071211
  2. UNKNOWN DRUG [Concomitant]
     Route: 042
  3. SOLDEM 3A [Concomitant]
     Route: 042
  4. UNKNOWN DRUG [Concomitant]
     Dosage: 2G PER DAY
     Route: 042

REACTIONS (2)
  - ALTERED STATE OF CONSCIOUSNESS [None]
  - DELIRIUM [None]
